FAERS Safety Report 24386001 (Version 1)
Quarter: 2024Q4

REPORT INFORMATION
  Report Type: Spontaneous
  Country: US (occurrence: None)
  Receive Date: 20241001
  Receipt Date: 20241001
  Transmission Date: 20250115
  Serious: No
  Sender: Public
  Company Number: None

PATIENT
  Sex: 0

DRUGS (2)
  1. ZOCOR [Suspect]
     Active Substance: SIMVASTATIN
  2. ROSUVASTATIN [Suspect]
     Active Substance: ROSUVASTATIN

REACTIONS (3)
  - Amnesia [None]
  - Myalgia [None]
  - Treatment failure [None]

NARRATIVE: CASE EVENT DATE: 20241001
